FAERS Safety Report 13931682 (Version 1)
Quarter: 2017Q3

REPORT INFORMATION
  Report Type: Spontaneous
  Country: US (occurrence: US)
  Receive Date: 20170904
  Receipt Date: 20170904
  Transmission Date: 20171127
  Serious: Yes (Other)
  Sender: FDA-Public Use
  Company Number: US-STRIDES ARCOLAB LIMITED-2017SP008964

PATIENT

DRUGS (1)
  1. METRONIDAZOLE. [Suspect]
     Active Substance: METRONIDAZOLE
     Indication: COLITIS MICROSCOPIC
     Dosage: CUMULATIVE DOSE: 1095G
     Route: 065

REACTIONS (3)
  - Cerebellar syndrome [Recovered/Resolved]
  - Off label use [Unknown]
  - Encephalopathy [Recovered/Resolved]
